FAERS Safety Report 13291094 (Version 1)
Quarter: 2017Q1

REPORT INFORMATION
  Report Type: Report from Study
  Country: US (occurrence: US)
  Receive Date: 20170302
  Receipt Date: 20170302
  Transmission Date: 20170428
  Serious: Yes (Death, Other)
  Sender: FDA-Public Use
  Company Number: US-ASTRAZENECA-2016SE85068

PATIENT
  Age: 19981 Day
  Sex: Female

DRUGS (1)
  1. LYNPARZA [Suspect]
     Active Substance: OLAPARIB
     Indication: OVARIAN CANCER
     Route: 048
     Dates: start: 20160727

REACTIONS (6)
  - Fatigue [Not Recovered/Not Resolved]
  - Metastases to lung [Not Recovered/Not Resolved]
  - Malignant neoplasm progression [Unknown]
  - Death [Fatal]
  - Cough [Unknown]
  - Metastases to bone [Not Recovered/Not Resolved]

NARRATIVE: CASE EVENT DATE: 20170130
